FAERS Safety Report 19312853 (Version 1)
Quarter: 2021Q2

REPORT INFORMATION
  Report Type: Spontaneous
  Country: US (occurrence: US)
  Receive Date: 20210526
  Receipt Date: 20210526
  Transmission Date: 20210717
  Serious: Yes (Hospitalization)
  Sender: FDA-Public Use
  Company Number: None

PATIENT
  Age: 48 Year
  Sex: Male

DRUGS (2)
  1. TACROLIMUS. [Suspect]
     Active Substance: TACROLIMUS
     Indication: LIVER TRANSPLANT
     Route: 048
     Dates: start: 20160504
  2. REMICADE [Suspect]
     Active Substance: INFLIXIMAB

REACTIONS (3)
  - Hypersensitivity [None]
  - Dialysis [None]
  - Acute kidney injury [None]

NARRATIVE: CASE EVENT DATE: 20210328
